FAERS Safety Report 6508609-6 (Version None)
Quarter: 2009Q4

REPORT INFORMATION
  Report Type: 
  Country: None (occurrence: None)
  Receive Date: 20091221
  Receipt Date: 20091210
  Transmission Date: 20100525
  Serious: Yes (Hospitalization)
  Sender: FDA-Public Use
  Company Number: JP-BAXTER-2009BH019419

PATIENT
  Age: 27 Year
  Sex: Female

DRUGS (6)
  1. ENDOXAN BAXTER [Suspect]
     Indication: DRUG USE FOR UNKNOWN INDICATION
     Route: 042
     Dates: start: 20090612
  2. BAKTAR [Suspect]
     Indication: OPPORTUNISTIC INFECTION PROPHYLAXIS
     Route: 048
     Dates: start: 20090612, end: 20090703
  3. PREDONINE [Suspect]
     Indication: SCLERODERMA
     Route: 048
     Dates: start: 20090526
  4. BERAPROST SODIUM [Concomitant]
     Indication: SCLERODERMA
     Route: 048
     Dates: start: 20090616
  5. SELBEX [Concomitant]
     Indication: MUCOUS MEMBRANE DISORDER
     Route: 048
     Dates: start: 20090526
  6. ALFACALCIDOL [Concomitant]
     Indication: OSTEOPOROSIS PROPHYLAXIS
     Route: 048
     Dates: start: 20090612

REACTIONS (1)
  - MYALGIA [None]
